FAERS Safety Report 5395784-2 (Version None)
Quarter: 2007Q3

REPORT INFORMATION
  Report Type: 
  Country: None (occurrence: None)
  Receive Date: 20070724
  Receipt Date: 20070712
  Transmission Date: 20080115
  Serious: Yes (Hospitalization, Other)
  Sender: FDA-Public Use
  Company Number: US-PFIZER INC-2006067168

PATIENT
  Sex: Male

DRUGS (10)
  1. PHENYTOIN SODIUM [Suspect]
     Indication: CONVULSION
     Route: 048
     Dates: start: 20040114, end: 20040203
  2. DILANTIN [Suspect]
     Indication: CONVULSION
     Dosage: TEXT:UNKNOWN-FREQ:UNKNOWN
     Route: 065
     Dates: start: 20040130, end: 20040131
  3. CARBAMAZEPINE [Suspect]
     Indication: ILL-DEFINED DISORDER
     Route: 065
  4. GABAPENTIN [Concomitant]
     Route: 065
  5. CITALOPRAM [Concomitant]
     Route: 065
  6. MAGNESIUM SULFATE [Concomitant]
     Route: 065
  7. THIAMINE [Concomitant]
     Route: 065
  8. FOLIC ACID [Concomitant]
     Route: 065
  9. ZESTRIL [Concomitant]
     Route: 065
  10. VITAMIN CAP [Concomitant]
     Route: 065

REACTIONS (4)
  - ANTICONVULSANT DRUG LEVEL BELOW THERAPEUTIC [None]
  - CONVULSION [None]
  - DERMATITIS EXFOLIATIVE [None]
  - STEVENS-JOHNSON SYNDROME [None]
